FAERS Safety Report 17593832 (Version 1)
Quarter: 2020Q1

REPORT INFORMATION
  Report Type: Spontaneous
  Country: AT (occurrence: AT)
  Receive Date: 20200328
  Receipt Date: 20200328
  Transmission Date: 20200409
  Serious: Yes (Other)
  Sender: FDA-Public Use
  Company Number: AT-ACCORD-177274

PATIENT
  Sex: Female

DRUGS (5)
  1. TEMOZOLOMIDE. [Suspect]
     Active Substance: TEMOZOLOMIDE
     Indication: OCULAR LYMPHOMA
     Dosage: (150 MG/M2) D1-5, Q28
     Route: 048
  2. RITUXIMAB. [Suspect]
     Active Substance: RITUXIMAB
     Indication: OCULAR LYMPHOMA
     Dosage: Q4W
     Route: 058
  3. CYTARABINE/CYTARABINE HYDROCHLORIDE/CYTARABINE OCFOSFATE [Suspect]
     Active Substance: CYTARABINE
     Indication: OCULAR LYMPHOMA
     Dosage: BIWEEKLY
     Route: 037
  4. DEXAMETHASONE. [Suspect]
     Active Substance: DEXAMETHASONE
     Indication: OCULAR LYMPHOMA
     Route: 048
  5. POMALIDOMIDE [Suspect]
     Active Substance: POMALIDOMIDE
     Indication: OCULAR LYMPHOMA
     Dosage: 4MG D1-21, Q28
     Route: 048

REACTIONS (5)
  - Off label use [Unknown]
  - Neurotoxicity [Recovered/Resolved]
  - Hypogammaglobulinaemia [Recovered/Resolved]
  - Adrenal insufficiency [Recovered/Resolved]
  - Pneumonia [Recovered/Resolved]
